FAERS Safety Report 8059394-0 (Version None)
Quarter: 2012Q1

REPORT INFORMATION
  Report Type: 
  Country: None (occurrence: None)
  Receive Date: 20120113
  Receipt Date: 20120105
  Transmission Date: 20120608
  Serious: Yes (Hospitalization)
  Sender: FDA-Public Use
  Company Number: 2012SP001208

PATIENT
  Age: 38 Year
  Sex: Female

DRUGS (3)
  1. SAPHRIS [Suspect]
     Indication: BIPOLAR DISORDER
     Dosage: 5 MG; BID; SL
     Route: 060
     Dates: start: 20111201, end: 20111201
  2. LITHIUM [Concomitant]
  3. LEXAPRO [Concomitant]

REACTIONS (5)
  - AGGRESSION [None]
  - THINKING ABNORMAL [None]
  - PARANOIA [None]
  - PSYCHOTIC DISORDER [None]
  - DEPRESSION [None]
